FAERS Safety Report 9237223 (Version 2)
Quarter: 2013Q3

REPORT INFORMATION
  Report Type: Report from Study
  Country: US (occurrence: US)
  Receive Date: 20130417
  Receipt Date: 20130723
  Transmission Date: 20140515
  Serious: Yes (Hospitalization, Other)
  Sender: FDA-Public Use
  Company Number: US-ABBOTT-13P-163-1074685-00

PATIENT
  Age: 15 Year
  Sex: Female

DRUGS (11)
  1. HUMIRA [Suspect]
     Indication: CROHN^S DISEASE
     Route: 058
     Dates: start: 20130118
  2. HUMIRA [Suspect]
     Route: 058
     Dates: start: 201303
  3. TORADOL [Suspect]
     Indication: CROHN^S DISEASE
     Dates: start: 20130207, end: 20130207
  4. TORADOL [Suspect]
     Indication: MYALGIA
  5. VANCOMYCIN [Suspect]
     Indication: CROHN^S DISEASE
     Route: 042
     Dates: start: 20130206, end: 20130208
  6. VANCOMYCIN [Suspect]
     Route: 048
     Dates: start: 20130206, end: 20130206
  7. ZOSYN [Suspect]
     Indication: PRODUCT USED FOR UNKNOWN INDICATION
  8. DICYCLOMINE HCL [Concomitant]
     Indication: PRODUCT USED FOR UNKNOWN INDICATION
  9. LISINOPRIL [Concomitant]
     Indication: PRODUCT USED FOR UNKNOWN INDICATION
  10. PREDNISONE [Concomitant]
     Indication: PRODUCT USED FOR UNKNOWN INDICATION
  11. PRILOSEC [Concomitant]
     Indication: PRODUCT USED FOR UNKNOWN INDICATION

REACTIONS (8)
  - Renal failure [Recovering/Resolving]
  - Crohn^s disease [Recovered/Resolved]
  - Nausea [Unknown]
  - Vomiting [Unknown]
  - Abdominal abscess [Unknown]
  - Rash [Unknown]
  - Infection [Unknown]
  - Dehydration [Unknown]
